FAERS Safety Report 4332315-X (Version None)
Quarter: 2004Q1

REPORT INFORMATION
  Report Type: 
  Country: None (occurrence: None)
  Receive Date: 20040331
  Receipt Date: 20040318
  Transmission Date: 20041129
  Serious: Yes (Hospitalization)
  Sender: FDA-Public Use
  Company Number: 2004203331NL

PATIENT
  Age: 54 Year
  Sex: Female

DRUGS (13)
  1. COMPARATOR-CARBOPLATIN [Suspect]
     Indication: OVARIAN CANCER
     Dosage: 690 MG, CYCLIC
     Dates: start: 20040130
  2. COMPARATOR-CARBOPLATIN [Suspect]
     Indication: OVARIAN CANCER
     Dosage: 690 MG, CYCLIC
     Dates: start: 20040220
  3. COMPARATOR-DOCETAXEL(DOCETAXEL) [Suspect]
     Indication: OVARIAN CANCER
     Dosage: 150 MG, CYCLIC
     Dates: start: 20040130
  4. COMPARATOR-DOCETAXEL(DOCETAXEL) [Suspect]
     Indication: OVARIAN CANCER
     Dosage: 150 MG, CYCLIC
     Dates: start: 20040220
  5. CIPROFLOXACIN [Concomitant]
  6. KYTRIL [Concomitant]
  7. FERROGRADUMET [Concomitant]
  8. METOLLOPROPAMIDE [Concomitant]
  9. ATENOLOL [Concomitant]
  10. HYDROCHLOROTHIAZIDE [Concomitant]
  11. NITRAZEPAM [Concomitant]
  12. DUSPATAL (MEBEVERINE) [Concomitant]
  13. OMEPRAZOLE [Concomitant]

REACTIONS (1)
  - PULMONARY EMBOLISM [None]
